FAERS Safety Report 8897809 (Version 2)
Quarter: 2013Q1

REPORT INFORMATION
  Report Type: Report from Study
  Country: JP (occurrence: JP)
  Receive Date: 20121109
  Receipt Date: 20130306
  Transmission Date: 20140127
  Serious: Yes (Hospitalization)
  Sender: FDA-Public Use
  Company Number: JP-ELI_LILLY_AND_COMPANY-JP201206005868

PATIENT
  Age: 61 Year
  Sex: Female
  Weight: 45 kg

DRUGS (6)
  1. TADALAFIL [Suspect]
     Indication: PULMONARY ARTERIAL HYPERTENSION
     Dosage: 40 MG, QD
     Route: 048
     Dates: start: 20111128, end: 20120608
  2. VOLIBRIS [Concomitant]
     Indication: PULMONARY ARTERIAL HYPERTENSION
     Dosage: UNK
     Route: 048
  3. TAKEPRON [Concomitant]
     Dosage: UNK
     Route: 048
  4. PREDNISOLON [Concomitant]
     Indication: DERMATOMYOSITIS
     Dosage: UNK
     Route: 048
  5. HOKUNALIN [Concomitant]
     Dosage: UNK
     Route: 062
  6. OXYGEN [Concomitant]
     Indication: PULMONARY ARTERIAL HYPERTENSION
     Dosage: UNK
     Route: 055
     Dates: start: 20111128

REACTIONS (2)
  - Epistaxis [Recovering/Resolving]
  - Epistaxis [Recovering/Resolving]
